FAERS Safety Report 6766566-1 (Version None)
Quarter: 2010Q2

REPORT INFORMATION
  Report Type: 
  Country: None (occurrence: None)
  Receive Date: 20100611
  Receipt Date: 20100601
  Transmission Date: 20101027
  Serious: Yes (Life-Threatening, Hospitalization)
  Sender: FDA-Public Use
  Company Number: US-WYE-H15096610

PATIENT
  Sex: Male

DRUGS (3)
  1. PRISTIQ [Suspect]
     Indication: DEPRESSION
     Dosage: UNKNOWN
  2. CYMBALTA [Suspect]
     Indication: NEUROPATHY PERIPHERAL
  3. CYMBALTA [Suspect]
     Indication: DEPRESSION

REACTIONS (7)
  - BLOOD PRESSURE INCREASED [None]
  - ENCEPHALOPATHY [None]
  - MECHANICAL VENTILATION [None]
  - MULTI-ORGAN FAILURE [None]
  - RENAL FAILURE [None]
  - TREMOR [None]
  - UNRESPONSIVE TO STIMULI [None]
